FAERS Safety Report 4983809-5 (Version None)
Quarter: 2006Q1

REPORT INFORMATION
  Report Type: 
  Country: None (occurrence: None)
  Receive Date: 20060301
  Receipt Date: 20051122
  Transmission Date: 20060701
  Serious: No
  Sender: FDA-Public Use
  Company Number: S05-USA-05037-01

PATIENT
  Age: 61 Year
  Sex: Female

DRUGS (6)
  1. NAMENDA [Suspect]
     Indication: AMNESIA
     Dosage: 5 MG BID PO
     Route: 048
     Dates: start: 20051113, end: 20051119
  2. NAMENDA [Suspect]
     Indication: AMNESIA
     Dosage: 15 MG QD PO
     Route: 048
     Dates: start: 20051120
  3. NAMENDA [Suspect]
     Indication: AMNESIA
     Dosage: 5 MG QD PO
     Route: 048
     Dates: start: 20051106, end: 20051112
  4. ZOLOFT [Suspect]
     Indication: DEPRESSION
     Dosage: 150 MG QOD PO
     Route: 048
     Dates: start: 20051106
  5. ZOLOFT [Suspect]
     Indication: DEPRESSION
     Dosage: 100 MG QOD PO
     Route: 048
     Dates: start: 20051107
  6. SUPPLEMENT (NOS) [Concomitant]

REACTIONS (1)
  - HEADACHE [None]
